FAERS Safety Report 9150202 (Version 1)
Quarter: 2013Q1

REPORT INFORMATION
  Report Type: Spontaneous
  Country: US (occurrence: US)
  Receive Date: 20130308
  Receipt Date: 20130308
  Transmission Date: 20140127
  Serious: No
  Sender: FDA-Public Use
  Company Number: US-GLAXOSMITHKLINE-A0963845A

PATIENT
  Age: 64 Year
  Sex: Male

DRUGS (9)
  1. NICORETTE [Suspect]
     Indication: EX-TOBACCO USER
     Dates: start: 201108
  2. NICORETTE [Suspect]
     Indication: EX-TOBACCO USER
  3. TRILIPIX [Concomitant]
  4. TOPROL [Concomitant]
  5. GABAPENTIN [Concomitant]
  6. NORVASC [Concomitant]
  7. NEXIUM [Concomitant]
  8. CRESTOR [Concomitant]
  9. SPIRIVA [Concomitant]

REACTIONS (5)
  - Nicotine dependence [Not Recovered/Not Resolved]
  - Drug ineffective [Unknown]
  - Drug administration error [Unknown]
  - Product quality issue [Unknown]
  - Nicotine dependence [Unknown]
